FAERS Safety Report 21512511 (Version 2)
Quarter: 2022Q4

REPORT INFORMATION
  Report Type: Report from Study
  Country: PR (occurrence: PR)
  Receive Date: 20221027
  Receipt Date: 20221103
  Transmission Date: 20230113
  Serious: Yes (Death)
  Sender: FDA-Public Use
  Company Number: PR-ABBVIE-4176411

PATIENT
  Sex: Male
  Weight: 77.6 kg

DRUGS (1)
  1. VENCLEXTA [Suspect]
     Active Substance: VENETOCLAX
     Indication: Acute myeloid leukaemia
     Route: 048
     Dates: start: 20220929

REACTIONS (2)
  - Sepsis [Fatal]
  - Impaired gastric emptying [Fatal]

NARRATIVE: CASE EVENT DATE: 20220101
